FAERS Safety Report 4706576-9 (Version None)
Quarter: 2005Q3

REPORT INFORMATION
  Report Type: 
  Country: None (occurrence: None)
  Receive Date: 20050705
  Receipt Date: 20050407
  Transmission Date: 20060218
  Serious: Yes (Hospitalization)
  Sender: FDA-Public Use
  Company Number: 2005CG00710

PATIENT
  Age: 93 Year
  Sex: Female

DRUGS (15)
  1. NEXIUM [Suspect]
     Indication: GASTRIC ULCER
     Route: 048
     Dates: start: 20050131, end: 20050203
  2. NEXIUM [Suspect]
     Route: 048
     Dates: start: 20050208, end: 20050209
  3. NEXIUM [Suspect]
     Route: 048
     Dates: start: 20050210, end: 20050214
  4. NEXIUM [Suspect]
     Route: 048
     Dates: start: 20050201
  5. EUPANTOL [Suspect]
     Indication: GASTRIC ULCER
     Route: 042
     Dates: start: 20050129, end: 20050130
  6. EUPANTOL [Suspect]
     Route: 042
     Dates: start: 20050204, end: 20050207
  7. AMOXICILLIN [Suspect]
     Route: 048
     Dates: start: 20050208, end: 20050214
  8. OLMETEC [Suspect]
     Route: 048
     Dates: end: 20050214
  9. DAFALGAN [Concomitant]
     Route: 048
  10. LEVOTHYROX [Concomitant]
  11. TARDYFERON [Concomitant]
     Dates: start: 20050128
  12. DI-ANTALVIC [Concomitant]
     Dates: start: 20050128
  13. XANAX [Concomitant]
     Indication: EMOTIONAL DISTRESS
     Dates: start: 20050128
  14. OFLOCET [Concomitant]
     Indication: URINARY TRACT INFECTION
     Route: 048
     Dates: start: 20050206, end: 20050208
  15. ZECLAR [Concomitant]
     Route: 048
     Dates: start: 20050208, end: 20050217

REACTIONS (7)
  - CULTURE URINE POSITIVE [None]
  - GASTRIC ULCER [None]
  - HAEMATURIA [None]
  - LEUKOCYTURIA [None]
  - NITRITE URINE PRESENT [None]
  - OVERDOSE [None]
  - RENAL FAILURE ACUTE [None]
